FAERS Safety Report 13205280 (Version 1)
Quarter: 2017Q1

REPORT INFORMATION
  Report Type: Spontaneous
  Country: CH (occurrence: CH)
  Receive Date: 20170209
  Receipt Date: 20170209
  Transmission Date: 20170428
  Serious: Yes (Other)
  Sender: FDA-Public Use
  Company Number: CH-PFIZER INC-2017053629

PATIENT
  Age: 39 Year
  Sex: Female
  Weight: 64 kg

DRUGS (1)
  1. RELPAX [Suspect]
     Active Substance: ELETRIPTAN HYDROBROMIDE
     Indication: MIGRAINE
     Dosage: 3 TABLETS (DOSAGE NOT REPORTED) TAKEN ON THE SAME DAY
     Route: 048
     Dates: start: 201611

REACTIONS (1)
  - Abortion incomplete [Unknown]

NARRATIVE: CASE EVENT DATE: 20170101
